FAERS Safety Report 24634635 (Version 1)
Quarter: 2024Q4

REPORT INFORMATION
  Report Type: Spontaneous
  Country: US (occurrence: US)
  Receive Date: 20241119
  Receipt Date: 20241119
  Transmission Date: 20250115
  Serious: No
  Sender: STALLERGENES
  Company Number: US-STALCOR-2024-AER-02002

PATIENT
  Age: 6 Year
  Sex: Female

DRUGS (6)
  1. PALFORZIA [Suspect]
     Active Substance: PEANUT
     Indication: Food allergy
     Dosage: 6X1MG LEVEL 2
     Route: 048
  2. ALBUTEROL SULFATE [Concomitant]
     Active Substance: ALBUTEROL SULFATE
     Indication: Product used for unknown indication
  3. AZITHROMYCIN SUS 200/5ML [Concomitant]
     Indication: Product used for unknown indication
     Dosage: 200/5ML
  4. EPINEPHRINE INJ 0.15MG [Concomitant]
     Indication: Product used for unknown indication
  5. FLOVENT HFA AER 44MCG [Concomitant]
     Indication: Product used for unknown indication
  6. QVAR REDIHALER [Concomitant]
     Active Substance: BECLOMETHASONE DIPROPIONATE
     Indication: Product used for unknown indication

REACTIONS (3)
  - Pyrexia [Not Recovered/Not Resolved]
  - Headache [Not Recovered/Not Resolved]
  - Abdominal discomfort [Not Recovered/Not Resolved]

NARRATIVE: CASE EVENT DATE: 20240829
